FAERS Safety Report 5925670-8 (Version None)
Quarter: 2008Q4

REPORT INFORMATION
  Report Type: 
  Country: None (occurrence: None)
  Receive Date: 20080919
  Receipt Date: 20080623
  Transmission Date: 20090506
  Serious: No
  Sender: FDA-Public Use
  Company Number: US-WYE-H04709508

PATIENT
  Age: 54 Year
  Sex: Female
  Weight: 58.11 kg

DRUGS (14)
  1. PRISTIQ [Suspect]
     Indication: DEPRESSION
     Dosage: 50 MG 1X PER 1 DAY, ORAL
     Route: 048
     Dates: start: 20080620
  2. LAMICTAL [Concomitant]
  3. LIPITOR [Concomitant]
  4. HYDROCODONE (HYDROCODONE) [Concomitant]
  5. GLYBURIDE [Concomitant]
  6. ALPRAZOLAM [Concomitant]
  7. AMITIZA [Concomitant]
  8. METFORMIN HCL [Concomitant]
  9. ADDERALL 10 [Concomitant]
  10. TRAZODONE HCL [Concomitant]
  11. MAXIDEX (BENZALKONIUM CHLORIDE/DEXAMETHASONE/PHENYLMERCURIC NITRATE) [Concomitant]
  12. FLEXERIL [Concomitant]
  13. PROPRANOLOL [Concomitant]
  14. SINGULAIR [Concomitant]

REACTIONS (1)
  - SOMNOLENCE [None]
